FAERS Safety Report 9428771 (Version 1)
Quarter: 2013Q3

REPORT INFORMATION
  Report Type: Report from Study
  Country: US (occurrence: US)
  Receive Date: 20130730
  Receipt Date: 20130730
  Transmission Date: 20140515
  Serious: No
  Sender: FDA-Public Use
  Company Number: US-ABBOTT-13P-163-1031221-00

PATIENT
  Sex: Male
  Weight: 72.64 kg

DRUGS (5)
  1. NIASPAN [Suspect]
     Indication: HIGH DENSITY LIPOPROTEIN DECREASED
     Dosage: AFTER A MEAL DURING THE DAY
     Route: 048
  2. NIASPAN [Suspect]
     Dosage: 500 X 2 AFTER A MEAL DURING THE DAY
     Route: 048
  3. PRAVASTATIN [Concomitant]
     Indication: PRODUCT USED FOR UNKNOWN INDICATION
     Dosage: 20MG DAILY
     Route: 048
  4. ASTELIN [Concomitant]
     Indication: NASAL CONGESTION
  5. ASTELIN [Concomitant]
     Indication: UPPER-AIRWAY COUGH SYNDROME

REACTIONS (7)
  - Fatigue [Not Recovered/Not Resolved]
  - Fatigue [Not Recovered/Not Resolved]
  - Chromaturia [Unknown]
  - Flushing [Unknown]
  - Generalised erythema [Not Recovered/Not Resolved]
  - Paraesthesia [Not Recovered/Not Resolved]
  - Pruritus [Not Recovered/Not Resolved]
